FAERS Safety Report 9039249 (Version 1)
Quarter: 2013Q1

REPORT INFORMATION
  Report Type: Spontaneous
  Country: US (occurrence: None)
  Receive Date: 20130123
  Receipt Date: 20130123
  Transmission Date: 20140127
  Serious: No
  Sender: FDA-Public Use
  Company Number: None

PATIENT
  Sex: Male
  Weight: 104.4 kg

DRUGS (1)
  1. HALDOL [Suspect]
     Indication: AGITATION
     Dosage: 10 MG Q6H PRN IM
     Route: 030
     Dates: start: 20130113, end: 20130114

REACTIONS (4)
  - Joint stiffness [None]
  - Protrusion tongue [None]
  - Dysarthria [None]
  - Movement disorder [None]
